FAERS Safety Report 8471775-X (Version None)
Quarter: 2012Q2

REPORT INFORMATION
  Report Type: 
  Country: None (occurrence: None)
  Receive Date: 20120627
  Receipt Date: 20110906
  Transmission Date: 20120825
  Serious: Yes (Other)
  Sender: FDA-Public Use
  Company Number: US-ROCHE-802135

PATIENT
  Age: 68 Year
  Sex: Female
  Weight: 50.8 kg

DRUGS (1)
  1. KLONOPIN [Suspect]
     Indication: ANXIETY
     Dosage: 1-2 AT NIGHT
     Route: 048

REACTIONS (9)
  - MEMORY IMPAIRMENT [None]
  - MALIGNANT MELANOMA [None]
  - ANXIETY [None]
  - DRUG INEFFECTIVE [None]
  - WEIGHT DECREASED [None]
  - DEPRESSION [None]
  - NAUSEA [None]
  - CONFUSIONAL STATE [None]
  - DECREASED APPETITE [None]
